FAERS Safety Report 15798090 (Version 1)
Quarter: 2018Q4

REPORT INFORMATION
  Report Type: Spontaneous
  Country: US (occurrence: US)
  Receive Date: 20181231
  Receipt Date: 20181231
  Transmission Date: 20190205
  Serious: No
  Sender: FDA-Public Use
  Company Number: None

PATIENT
  Sex: Female

DRUGS (1)
  1. 5 (FIVE) MCG PO LIOTHYRONINE TABLETS [Suspect]
     Active Substance: LIOTHYRONINE

REACTIONS (9)
  - Incorrect dose administered [None]
  - Dysphagia [None]
  - Feeling jittery [None]
  - Muscle twitching [None]
  - Transcription medication error [None]
  - Product dispensing error [None]
  - Intercepted product dispensing error [None]
  - Thinking abnormal [None]
  - Insomnia [None]
